FAERS Safety Report 9843086 (Version 1)
Quarter: 2013Q4

REPORT INFORMATION
  Report Type: Spontaneous
  Country: US (occurrence: None)
  Receive Date: 20131219
  Receipt Date: 20131219
  Transmission Date: 20140711
  Serious: Yes (Disabling, Other)
  Sender: FDA-Public Use
  Company Number: 163-20785-13070288

PATIENT
  Age: 49 Year
  Sex: Female

DRUGS (29)
  1. THALOMID [Suspect]
     Indication: PLASMA CELL MYELOMA
     Route: 048
     Dates: start: 20110412, end: 20130406
  2. LASIX (FUROSEMIDE) (UNKNOWN) [Concomitant]
  3. PLAVIX (CLOPIDOGREL SULFATE) (TABLETS) [Concomitant]
  4. LANTUS (INSULIN GLARGINE) (INJECTION) [Concomitant]
  5. ASPIRIN (ACETYLSALICYLIC ACID) (TABLETS) [Concomitant]
  6. NOVOLOG (INSULIN ASPART) (INJECTION) [Concomitant]
  7. LEXAPRO (ESCITALOPRAM OXALATE) (TABLETS) [Concomitant]
  8. LORAZEPAM (LORAZEPAM) (TABLETS) [Concomitant]
  9. VICODIN (VICODIN) (TABLETS) [Concomitant]
  10. SENOKOT S (COLOXYL WITH SENNA) (TABLETS) [Concomitant]
  11. COLACE [Concomitant]
  12. SOMA (CARISOPRODOL) (TABLETS) [Concomitant]
  13. PERCOCET (OXYCOCET) (TABLETS) [Concomitant]
  14. FLONASE (FLUTICASONE PROPIONATE) (SUSPENSION) [Concomitant]
  15. XOPENEX HFA (LEVOSALBUTAMOL TARTRATE) (AEROSOL FOR INHALATION) [Concomitant]
  16. PRAMIPEXOLE DIHYDROCHLORIDE (PRAMIPEXOLE DIHYDROCHLORIDE) (TABLETS) [Concomitant]
  17. TIZANIDINE HCL (TIZANIDINE) (TABLETS) [Concomitant]
  18. VESICARE (SOLIFENACIN SUCCINATE) (TABLETS) [Concomitant]
  19. ATORVASTATIN CALCIUM (ATORVASTATIN CALCIUM) (TABLETS) [Concomitant]
  20. ACIDOPHILUS (LACTOBACILLUS ACIDOPHILUS) (CAPSULES) [Concomitant]
  21. TRAZODONE HCL (TRAZODONE HYDROCHLORIDE) (TABLETS) [Concomitant]
  22. MULTIVITAMINS (MULTIVITAMINS) (CAPSULES) [Concomitant]
  23. OXYCONTIN (OXYCODONE HYDROCHLORIDE) (SUSTAINED-RELEASE TABLET) [Concomitant]
  24. SPIRIVA HANDIHALER (TIOTROPIUM BROMIDE) (CAPSULES) [Concomitant]
  25. ADVAIR HFA (SERETIDE MITE) (AEROSOL FOR INHALATION) [Concomitant]
  26. SEROQUEL (QUETIAPINE FUMARATE) (TABLETS) [Concomitant]
  27. ATIVAN (LORAZEPAM) (SOLUTION) [Concomitant]
  28. ZZZQUIL (DIPHENHYDRAMINE HYDROCHLORIDE) (CAPSULES) [Concomitant]
  29. PANTOPRAZOLE SODIUM (PANTOPRAZOLE SODIUM) (ENTERIC-COATED TABLET) [Concomitant]

REACTIONS (2)
  - Neuropathy peripheral [None]
  - Pulmonary embolism [None]
